FAERS Safety Report 8236641-3 (Version None)
Quarter: 2012Q1

REPORT INFORMATION
  Report Type: 
  Country: None (occurrence: None)
  Receive Date: 20120327
  Receipt Date: 20120326
  Transmission Date: 20120608
  Serious: Yes (Other)
  Sender: FDA-Public Use
  Company Number: US-BAYER-2012-029182

PATIENT
  Age: 39 Year
  Sex: Male

DRUGS (3)
  1. BETASERON [Suspect]
     Dosage: UNK
     Dates: start: 20060227, end: 20060227
  2. BETASERON [Suspect]
     Dosage: 8 MIU, QOD
     Route: 058
     Dates: start: 20060310
  3. BETASERON [Suspect]
     Indication: RELAPSING-REMITTING MULTIPLE SCLEROSIS
     Dosage: UNK
     Dates: start: 20020807, end: 20051014

REACTIONS (7)
  - BACK PAIN [None]
  - CHILLS [None]
  - PYREXIA [None]
  - INFLUENZA LIKE ILLNESS [None]
  - HALLUCINATION [None]
  - ADVERSE DRUG REACTION [None]
  - INSOMNIA [None]
